FAERS Safety Report 8822355 (Version 1)
Quarter: 2012Q4

REPORT INFORMATION
  Report Type: 
  Country: US (occurrence: US)
  Receive Date: 20121003
  Receipt Date: 20121003
  Transmission Date: 20130627
  Serious: No
  Sender: FDA-Public Use
  Company Number: US-VERTEX PHARMACEUTICAL INC.-2012-020833

PATIENT

DRUGS (2)
  1. VX-770 [Suspect]
     Indication: CYSTIC FIBROSIS
     Dosage: 150 mg, bid
     Route: 048
     Dates: start: 20120301, end: 20120815
  2. TOBI                               /00304201/ [Concomitant]
     Indication: DYSPNOEA

REACTIONS (6)
  - Dyspnoea [Recovered/Resolved]
  - Fatigue [Recovered/Resolved]
  - Cough [Recovered/Resolved]
  - Feeling of body temperature change [Unknown]
  - Feeling abnormal [Unknown]
  - Dizziness [Unknown]
